FAERS Safety Report 8325379-X (Version None)
Quarter: 2012Q2

REPORT INFORMATION
  Report Type: 
  Country: None (occurrence: None)
  Receive Date: 20120501
  Receipt Date: 20120419
  Transmission Date: 20120825
  Serious: Yes (Other)
  Sender: FDA-Public Use
  Company Number: JP-UCBSA-055989

PATIENT
  Age: 70 Year
  Sex: Male

DRUGS (1)
  1. XYZAL [Suspect]
     Route: 048
     Dates: start: 20120404

REACTIONS (1)
  - PANCREATITIS [None]
